FAERS Safety Report 15725494 (Version 4)
Quarter: 2019Q3

REPORT INFORMATION
  Report Type: Report from Study
  Country: US (occurrence: US)
  Receive Date: 20181215
  Receipt Date: 20190821
  Transmission Date: 20191004
  Serious: Yes (Other)
  Sender: FDA-Public Use
  Company Number: PHEH2018US051912

PATIENT
  Sex: Female

DRUGS (1)
  1. GILENYA [Suspect]
     Active Substance: FINGOLIMOD HYDROCHLORIDE
     Indication: MULTIPLE SCLEROSIS
     Dosage: 0.5 MG, QD
     Route: 048
     Dates: start: 20180820

REACTIONS (5)
  - Hemiparesis [Unknown]
  - Eructation [Not Recovered/Not Resolved]
  - Pain [Unknown]
  - Weight increased [Not Recovered/Not Resolved]
  - Flatulence [Not Recovered/Not Resolved]
